FAERS Safety Report 8477451-1 (Version None)
Quarter: 2012Q2

REPORT INFORMATION
  Report Type: 
  Country: None (occurrence: None)
  Receive Date: 20120618
  Receipt Date: 20120405
  Transmission Date: 20120825
  Serious: Yes (Death)
  Sender: FDA-Public Use
  Company Number: DSA_57737_2012

PATIENT
  Age: 46 Year
  Sex: Male
  Weight: 108 kg

DRUGS (5)
  1. CYMBALTA [Concomitant]
  2. TRAZODONE HCL [Concomitant]
  3. WELLBUTRIN XL [Suspect]
     Indication: PRODUCT USED FOR UNKNOWN INDICATION
     Dosage: (150 MG ORAL)
     Route: 048
  4. RISPERIDONE [Concomitant]
  5. OXYCODONE HCL [Suspect]
     Indication: PRODUCT USED FOR UNKNOWN INDICATION
     Dosage: (DF)

REACTIONS (1)
  - DEATH [None]
